FAERS Safety Report 19502287 (Version 1)
Quarter: 2021Q3

REPORT INFORMATION
  Report Type: Spontaneous
  Country: CN (occurrence: CN)
  Receive Date: 20210707
  Receipt Date: 20210707
  Transmission Date: 20211014
  Serious: Yes (Hospitalization, Disabling)
  Sender: FDA-Public Use
  Company Number: CN-ROCHE-2862795

PATIENT
  Age: 60 Year
  Sex: Female
  Weight: 45 kg

DRUGS (16)
  1. ACTEMRA [Suspect]
     Active Substance: TOCILIZUMAB
     Route: 041
     Dates: start: 20200913, end: 20200913
  2. ACTEMRA [Suspect]
     Active Substance: TOCILIZUMAB
     Route: 041
     Dates: start: 202101
  3. ACTEMRA [Suspect]
     Active Substance: TOCILIZUMAB
     Indication: RHEUMATOID ARTHRITIS
     Route: 041
     Dates: start: 20200816, end: 20200816
  4. BAXTER SALINE [Concomitant]
     Active Substance: SODIUM CHLORIDE
     Route: 041
     Dates: start: 20201012, end: 20201012
  5. BAXTER SALINE [Concomitant]
     Active Substance: SODIUM CHLORIDE
     Dosage: ONCE
     Route: 041
     Dates: start: 202012
  6. BAXTER SALINE [Concomitant]
     Active Substance: SODIUM CHLORIDE
     Route: 041
     Dates: start: 20210314, end: 20210314
  7. ACTEMRA [Suspect]
     Active Substance: TOCILIZUMAB
     Route: 041
     Dates: start: 20201114, end: 20201114
  8. ACTEMRA [Suspect]
     Active Substance: TOCILIZUMAB
     Route: 041
     Dates: start: 20210314, end: 20210314
  9. BAXTER SALINE [Concomitant]
     Active Substance: SODIUM CHLORIDE
     Route: 041
     Dates: start: 20200816, end: 20200816
  10. BAXTER SALINE [Concomitant]
     Active Substance: SODIUM CHLORIDE
     Route: 041
     Dates: start: 20201114, end: 20201114
  11. BAXTER SALINE [Concomitant]
     Active Substance: SODIUM CHLORIDE
     Route: 041
     Dates: start: 20200913, end: 20200913
  12. BAXTER SALINE [Concomitant]
     Active Substance: SODIUM CHLORIDE
     Dosage: ONCE
     Route: 041
     Dates: start: 202101
  13. BAXTER SALINE [Concomitant]
     Active Substance: SODIUM CHLORIDE
     Dosage: ONCE
     Route: 041
     Dates: start: 202102
  14. ACTEMRA [Suspect]
     Active Substance: TOCILIZUMAB
     Route: 041
     Dates: start: 20201012, end: 20201012
  15. ACTEMRA [Suspect]
     Active Substance: TOCILIZUMAB
     Route: 041
     Dates: start: 202012
  16. ACTEMRA [Suspect]
     Active Substance: TOCILIZUMAB
     Route: 041
     Dates: start: 202102

REACTIONS (2)
  - Infection [Recovering/Resolving]
  - Bronchiectasis [Recovering/Resolving]

NARRATIVE: CASE EVENT DATE: 20210619
